FAERS Safety Report 7051580-1 (Version None)
Quarter: 2010Q4

REPORT INFORMATION
  Report Type: 
  Country: None (occurrence: None)
  Receive Date: 20101019
  Receipt Date: 20101011
  Transmission Date: 20110411
  Serious: Yes (Hospitalization)
  Sender: FDA-Public Use
  Company Number: AT-ROCHE-679331

PATIENT
  Sex: Female

DRUGS (3)
  1. MYCOPHENOLATE MOFETIL [Suspect]
     Indication: LIVER TRANSPLANT
     Route: 048
     Dates: start: 20080715
  2. BELATACEPT [Suspect]
     Indication: LIVER TRANSPLANT
     Dosage: PATIENT WAS TAKING MORE INTENSE REGIMEN
     Route: 042
     Dates: start: 20080715
  3. BLINDED BASILIXIMAB [Suspect]
     Indication: LIVER TRANSPLANT
     Dosage: DRUG: SIMULECT (BASILIXIMAB)
     Route: 042
     Dates: start: 20080715, end: 20080719

REACTIONS (1)
  - SPINAL COMPRESSION FRACTURE [None]
